FAERS Safety Report 21463618 (Version 3)
Quarter: 2023Q4

REPORT INFORMATION
  Report Type: Report from Study
  Country: US (occurrence: US)
  Receive Date: 20221017
  Receipt Date: 20231108
  Transmission Date: 20240109
  Serious: Yes (Hospitalization)
  Sender: FDA-Public Use
  Company Number: US-TAKEDA-US202014850

PATIENT
  Sex: Male

DRUGS (11)
  1. HUMAN C1-ESTERASE INHIBITOR [Suspect]
     Active Substance: HUMAN C1-ESTERASE INHIBITOR
     Indication: Immune system disorder
     Dosage: 500 INTERNATIONAL UNIT, 1/WEEK
     Route: 042
     Dates: start: 20200407
  2. HUMAN C1-ESTERASE INHIBITOR [Suspect]
     Active Substance: HUMAN C1-ESTERASE INHIBITOR
     Indication: Immune system disorder
     Dosage: 500 INTERNATIONAL UNIT, 1/WEEK
     Route: 042
     Dates: start: 20200407
  3. HUMAN C1-ESTERASE INHIBITOR [Suspect]
     Active Substance: HUMAN C1-ESTERASE INHIBITOR
     Indication: Immune system disorder
     Dosage: 500 INTERNATIONAL UNIT, 1/WEEK
     Route: 042
     Dates: start: 20200407
  4. HUMAN C1-ESTERASE INHIBITOR [Suspect]
     Active Substance: HUMAN C1-ESTERASE INHIBITOR
     Dosage: 500 INTERNATIONAL UNIT, 1/WEEK
     Route: 042
     Dates: start: 20200408
  5. HUMAN C1-ESTERASE INHIBITOR [Suspect]
     Active Substance: HUMAN C1-ESTERASE INHIBITOR
     Dosage: 500 INTERNATIONAL UNIT, 1/WEEK
     Route: 042
     Dates: start: 20200408
  6. HUMAN C1-ESTERASE INHIBITOR [Suspect]
     Active Substance: HUMAN C1-ESTERASE INHIBITOR
     Dosage: 500 INTERNATIONAL UNIT, 1/WEEK
     Route: 042
     Dates: start: 20200408
  7. HUMAN C1-ESTERASE INHIBITOR [Suspect]
     Active Substance: HUMAN C1-ESTERASE INHIBITOR
     Dosage: 500 INTERNATIONAL UNIT, 1/WEEK
     Route: 042
     Dates: start: 20220304
  8. HUMAN C1-ESTERASE INHIBITOR [Suspect]
     Active Substance: HUMAN C1-ESTERASE INHIBITOR
     Dosage: 500 INTERNATIONAL UNIT, 1/WEEK
     Route: 042
     Dates: start: 20220304
  9. HUMAN C1-ESTERASE INHIBITOR [Suspect]
     Active Substance: HUMAN C1-ESTERASE INHIBITOR
     Dosage: 500 INTERNATIONAL UNIT, 1/WEEK
     Route: 042
     Dates: start: 20220304
  10. TAKHZYRO [Suspect]
     Active Substance: LANADELUMAB-FLYO
     Indication: Immune system disorder
     Dosage: 300 MILLIGRAM, Q2WEEKS
     Route: 058
     Dates: start: 202303
  11. BERINERT [Concomitant]
     Active Substance: HUMAN C1-ESTERASE INHIBITOR
     Indication: Product used for unknown indication

REACTIONS (6)
  - Fall [Unknown]
  - Hereditary angioedema [Unknown]
  - Influenza [Unknown]
  - Weight increased [Unknown]
  - Weight decreased [Unknown]
  - Inappropriate schedule of product administration [Unknown]
